FAERS Safety Report 9353825 (Version 2)
Quarter: 2013Q3

REPORT INFORMATION
  Report Type: Report from Study
  Country: US (occurrence: US)
  Receive Date: 20130618
  Receipt Date: 20130703
  Transmission Date: 20140515
  Serious: Yes (Hospitalization, Other)
  Sender: FDA-Public Use
  Company Number: US-BAXTER-2013BAX022656

PATIENT
  Sex: Male
  Weight: 100 kg

DRUGS (5)
  1. ARALAST NP [Suspect]
     Indication: ALPHA-1 ANTI-TRYPSIN DEFICIENCY
     Route: 042
     Dates: start: 2011
  2. SPIRIVA [Concomitant]
     Indication: ALPHA-1 ANTI-TRYPSIN DEFICIENCY
     Route: 055
  3. SYMBICORT [Concomitant]
     Indication: ALPHA-1 ANTI-TRYPSIN DEFICIENCY
     Route: 055
  4. NEXIUM [Concomitant]
     Indication: PRODUCT USED FOR UNKNOWN INDICATION
     Route: 048
  5. PROVENTIL [Concomitant]
     Indication: ALPHA-1 ANTI-TRYPSIN DEFICIENCY
     Route: 055

REACTIONS (4)
  - Nasopharyngitis [Recovered/Resolved]
  - Pneumonia [Recovered/Resolved]
  - Pruritus [Recovered/Resolved]
  - Pyrexia [Recovered/Resolved]
